FAERS Safety Report 15597156 (Version 1)
Quarter: 2018Q4

REPORT INFORMATION
  Report Type: Spontaneous
  Country: HU (occurrence: HU)
  Receive Date: 20181108
  Receipt Date: 20181108
  Transmission Date: 20190205
  Serious: Yes (Other)
  Sender: FDA-Public Use
  Company Number: HU-AMGEN-HUNSP2018097275

PATIENT
  Age: 71 Year
  Sex: Male

DRUGS (5)
  1. VITAMIN D3 FLUSSIG [Concomitant]
     Dosage: 1000 IU, BID
  2. CITROKALCIUM [Concomitant]
     Dosage: 200 MG, TID
     Dates: start: 20181015
  3. CALCIUM [Concomitant]
     Active Substance: CALCIUM
     Dosage: UNK UNK, TID
     Dates: start: 20181015
  4. PROLIA [Suspect]
     Active Substance: DENOSUMAB
     Indication: OSTEOPOROSIS
     Dosage: 60 MG, Q6MO
     Route: 058
  5. CHOLECALCIFEROL [Concomitant]
     Active Substance: CHOLECALCIFEROL
     Dosage: UNK UNK, BID

REACTIONS (4)
  - Pain in jaw [Unknown]
  - Gingival swelling [Unknown]
  - Loss of consciousness [Recovered/Resolved]
  - Osteitis [Recovered/Resolved]

NARRATIVE: CASE EVENT DATE: 201804
